FAERS Safety Report 7895054 (Version 37)
Quarter: 2014Q4

REPORT INFORMATION
  Report Type: Report from Study
  Country: CA (occurrence: CA)
  Receive Date: 20110412
  Receipt Date: 20141231
  Transmission Date: 20150529
  Serious: Yes (Other)
  Sender: FDA-Public Use
  Company Number: PHHY2009CA41690

PATIENT
  Sex: Male

DRUGS (5)
  1. SANDOSTATIN LAR DEPOT [Suspect]
     Active Substance: OCTREOTIDE ACETATE
     Dosage: 30 MG, EVERY 4 WEEKS
     Route: 030
  2. SANDOSTATIN LAR DEPOT [Suspect]
     Active Substance: OCTREOTIDE ACETATE
     Dosage: 30 MG, ONCE A MONTH
     Route: 030
     Dates: start: 20090911
  3. ADALAT [Concomitant]
     Active Substance: NIFEDIPINE
     Indication: PRODUCT USED FOR UNKNOWN INDICATION
     Route: 065
     Dates: end: 20130716
  4. SANDOSTATIN LAR DEPOT [Suspect]
     Active Substance: OCTREOTIDE ACETATE
     Dosage: 30 MG, EVERY 4 WEEKS
     Route: 030
  5. SANDOSTATIN LAR DEPOT [Suspect]
     Active Substance: OCTREOTIDE ACETATE
     Dosage: 20 MG, EVERY 4 WEEKS
     Route: 030
     Dates: start: 20090828

REACTIONS (41)
  - Feeling cold [Unknown]
  - Pain in extremity [Unknown]
  - Pain [Unknown]
  - Blister [Recovering/Resolving]
  - Glomerular filtration rate decreased [Unknown]
  - Malaise [Unknown]
  - Depressed mood [Unknown]
  - Weight decreased [Unknown]
  - Hyperproteinaemia [Unknown]
  - Muscle tightness [Unknown]
  - Gastric haemorrhage [Unknown]
  - Gastrointestinal disorder [Unknown]
  - Oedema peripheral [Not Recovered/Not Resolved]
  - Back pain [Unknown]
  - Decreased appetite [Unknown]
  - Nausea [Unknown]
  - Abdominal distension [Unknown]
  - Dysgeusia [Unknown]
  - Musculoskeletal discomfort [Unknown]
  - Anxiety [Unknown]
  - Eating disorder symptom [Unknown]
  - Influenza [Unknown]
  - Blood pressure increased [Unknown]
  - Injection site pain [Unknown]
  - Dyspepsia [Unknown]
  - Cell marker increased [Unknown]
  - Glossodynia [Unknown]
  - Dysstasia [Unknown]
  - Muscle spasms [Unknown]
  - Epigastric discomfort [Unknown]
  - Frequent bowel movements [Unknown]
  - Nasopharyngitis [Unknown]
  - Stress [Unknown]
  - Faeces soft [Unknown]
  - Pancreatic neoplasm [Unknown]
  - Cough [Unknown]
  - Oedema [Unknown]
  - Insomnia [Unknown]
  - Blood creatinine increased [Unknown]
  - Rash [Unknown]
  - Fatigue [Unknown]
